FAERS Safety Report 4765778-6 (Version None)
Quarter: 2005Q3

REPORT INFORMATION
  Report Type: 
  Country: None (occurrence: None)
  Receive Date: 20050907
  Receipt Date: 20050907
  Transmission Date: 20060218
  Serious: Yes (Death, Hospitalization)
  Sender: FDA-Public Use
  Company Number: None

PATIENT
  Age: 35 Year
  Sex: Male
  Weight: 38 kg

DRUGS (5)
  1. ZERIT [Suspect]
     Indication: HIV INFECTION
     Dosage: 40 MG BID PO
     Route: 048
     Dates: start: 20050714
  2. EPIVIR [Suspect]
     Indication: HIV INFECTION
     Dosage: 150 MG BID PO
     Route: 048
     Dates: start: 20050714
  3. SUSTIVA [Suspect]
     Indication: HIV INFECTION
     Dosage: 600 MG QHS PO
     Route: 048
     Dates: start: 20050714
  4. VITAMIN B6 [Concomitant]
  5. RIFAFOUR [Concomitant]

REACTIONS (5)
  - CONVULSION [None]
  - DEHYDRATION [None]
  - DIARRHOEA [None]
  - GENERAL PHYSICAL HEALTH DETERIORATION [None]
  - LOSS OF CONSCIOUSNESS [None]
